FAERS Safety Report 9538645 (Version 1)
Quarter: 2013Q3

REPORT INFORMATION
  Report Type: Spontaneous
  Country: US (occurrence: None)
  Receive Date: 20130917
  Receipt Date: 20130917
  Transmission Date: 20140515
  Serious: Yes (Other)
  Sender: FDA-Public Use
  Company Number: 2013-US-000223

PATIENT
  Sex: 0

DRUGS (7)
  1. XYREM (SODIUM OXYBATE) ORAL SOLUTION, 500MG/ML [Suspect]
     Indication: NARCOLEPSY
     Route: 048
     Dates: start: 20090904, end: 201003
  2. XYREM (SODIUM OXYBATE) ORAL SOLUTION, 500MG/ML [Suspect]
     Indication: CATAPLEXY
     Route: 048
     Dates: start: 20090904, end: 201003
  3. ZYRTEC (CETIRIZINE HYDROCHLORIDE) [Concomitant]
  4. NUVIGIL (ARMODAFINLIL) [Concomitant]
  5. LEXAPRO (ESCITALOPRAM OXALATE) [Concomitant]
  6. TRIVITAMIN FLUORIDE (ASCORBIC ACID, ERGOCALCIFEROL, RETINOL, SODIUM FLUORIDE) [Concomitant]
  7. PROVIGIL (MODAFINIL) [Concomitant]

REACTIONS (2)
  - Sleep apnoea syndrome [None]
  - Depression [None]
